FAERS Safety Report 10451275 (Version 12)
Quarter: 2018Q3

REPORT INFORMATION
  Report Type: Spontaneous
  Country: US (occurrence: US)
  Receive Date: 20140912
  Receipt Date: 20180912
  Transmission Date: 20181010
  Serious: Yes (Other)
  Sender: FDA-Public Use
  Company Number: US-PFIZER INC-2014253630

PATIENT
  Age: 65 Year
  Sex: Female
  Weight: 121.5 kg

DRUGS (41)
  1. LOSARTAN POTASSIUM. [Concomitant]
     Active Substance: LOSARTAN POTASSIUM
     Indication: HYPERTENSION
     Dosage: 100 MG, 1X/DAY
     Route: 048
     Dates: start: 2011
  2. COZAAR [Concomitant]
     Active Substance: LOSARTAN POTASSIUM
     Dosage: 100 MG, 1X/DAY
     Route: 048
  3. GLUCOPHAGE [Concomitant]
     Active Substance: METFORMIN HYDROCHLORIDE
     Dosage: 1000 MG, 2X/DAY (WITH MEAL)
     Route: 048
  4. MULTIVITE [Concomitant]
     Active Substance: VITAMINS
     Dosage: UNK, DAILY
     Route: 048
  5. SITAGLIPTIN [Concomitant]
     Active Substance: SITAGLIPTIN
     Dosage: UNK
  6. GLUCOTROL [Concomitant]
     Active Substance: GLIPIZIDE
     Dosage: 10 MG, UNK
  7. JANUVIA [Concomitant]
     Active Substance: SITAGLIPTIN PHOSPHATE
     Indication: TYPE 2 DIABETES MELLITUS
     Dosage: UNK
     Route: 048
     Dates: start: 2013
  8. JANUVIA [Concomitant]
     Active Substance: SITAGLIPTIN PHOSPHATE
     Dosage: 100 MG, DAILY
     Route: 048
  9. LYRICA [Concomitant]
     Active Substance: PREGABALIN
     Indication: NEUROPATHY PERIPHERAL
     Dosage: 50 MG, 3X/DAY
     Route: 048
     Dates: start: 2015
  10. ASPIRIN. [Concomitant]
     Active Substance: ASPIRIN
     Dosage: 81 MG, DAILY
     Route: 048
     Dates: start: 2010
  11. CINNAMON. [Concomitant]
     Active Substance: CINNAMON
     Dosage: 1 DF, DAILY
     Route: 048
  12. DESYREL [Concomitant]
     Active Substance: TRAZODONE HYDROCHLORIDE
     Indication: INSOMNIA
     Dosage: 50 MG, AS NEEDED (AT BEDTIME)
     Route: 048
  13. METFORMIN [Concomitant]
     Active Substance: METFORMIN HYDROCHLORIDE
     Dosage: 1000 MG, 2X/DAY
  14. EFFEXOR XR [Suspect]
     Active Substance: VENLAFAXINE HYDROCHLORIDE
     Indication: DEPRESSION
     Dosage: 225 MG (3 X75 MG), EVERY MORNING
     Route: 048
     Dates: start: 2000
  15. TYLENOL [Concomitant]
     Active Substance: ACETAMINOPHEN
     Indication: PAIN
     Dosage: 650 MG (2 TABLETS) EVERY 4 HOURS AS NEEDED
     Route: 048
  16. LOVASTATIN. [Concomitant]
     Active Substance: LOVASTATIN
     Indication: HYPERCHOLESTEROLAEMIA
     Dosage: 20 MG, 1X/DAY [NIGHTLY]
     Route: 048
     Dates: start: 2012
  17. LORATADINE. [Concomitant]
     Active Substance: LORATADINE
     Indication: SINUS DISORDER
     Dosage: 10 MG, DAILY
     Route: 048
     Dates: start: 2008
  18. VITAMIN C [Concomitant]
     Active Substance: ASCORBIC ACID
     Dosage: 500 MG, DAILY
     Route: 048
  19. CLARITIN [Concomitant]
     Active Substance: LORATADINE
     Dosage: 10 MG, DAILY
     Route: 048
  20. DESYREL [Concomitant]
     Active Substance: TRAZODONE HYDROCHLORIDE
     Indication: MAJOR DEPRESSION
  21. GLUCOTROL [Concomitant]
     Active Substance: GLIPIZIDE
     Dosage: 10 MG, 2X/DAY
     Route: 048
  22. LANTUS [Concomitant]
     Active Substance: INSULIN GLARGINE
     Indication: DIABETES MELLITUS
     Dosage: 100 UNITS, 1X/DAY (NIGHTLY)
     Dates: start: 2005
  23. LYRICA [Concomitant]
     Active Substance: PREGABALIN
     Indication: BACK PAIN
     Dosage: 50 MG, 3X/DAY
     Route: 048
  24. LOSARTAN POTASSIUM. [Concomitant]
     Active Substance: LOSARTAN POTASSIUM
     Dosage: UNK
     Route: 048
     Dates: start: 2012
  25. GLUCOSAMINE/CHONDROITIN [Concomitant]
     Dosage: 2 DF, 2X/DAY
  26. APIDRA [Concomitant]
     Active Substance: INSULIN GLULISINE
     Indication: DIABETES MELLITUS
     Dosage: USUALLY 4 OR 5 UNITS, UNK
     Dates: start: 201604
  27. COQ10 [Concomitant]
     Active Substance: UBIDECARENONE
     Dosage: 50 MG, DAILY
     Route: 048
  28. ACETAMINOPHEN. [Concomitant]
     Active Substance: ACETAMINOPHEN
     Dosage: 325 MG, AS NEEDED
     Route: 048
  29. GLUCOSAMINE/CHONDROITIN [Concomitant]
     Dosage: 1 DF, 3X/DAY, [GLUCOSAMINE 500 MG]/[CHONDROITIN ? 400 MG]
     Route: 048
  30. LISINOPRIL. [Concomitant]
     Active Substance: LISINOPRIL
     Dosage: 40 MG, DAILY
     Route: 048
  31. EFFEXOR XR [Suspect]
     Active Substance: VENLAFAXINE HYDROCHLORIDE
     Dosage: 225 MG, DAILY
     Route: 048
  32. LOPID [Concomitant]
     Active Substance: GEMFIBROZIL
     Indication: HYPERTRIGLYCERIDAEMIA
     Dosage: 600 MG, 2X/DAY
     Route: 048
     Dates: start: 2015
  33. CALCIUM + VITAMIN D [Concomitant]
     Active Substance: CALCIUM\VITAMIN D
     Dosage: 1 DF, 2X/DAY [CALCIUM: 600 MG]/[VIT D: 200 MG]
     Route: 048
  34. ACETAMINOPHEN. [Concomitant]
     Active Substance: ACETAMINOPHEN
     Indication: PAIN
     Dosage: 2 X 500 MG EVERY MORNING (A.M.)
  35. EFFEXOR XR [Suspect]
     Active Substance: VENLAFAXINE HYDROCHLORIDE
     Indication: DEPRESSION
     Dosage: 225 MG, 1X/DAY
     Route: 048
     Dates: start: 2001, end: 201409
  36. JANUVIA [Concomitant]
     Active Substance: SITAGLIPTIN PHOSPHATE
     Indication: DIABETES MELLITUS
     Dosage: 100 MG, 1X/DAY
     Route: 048
     Dates: start: 2012
  37. LYRICA [Concomitant]
     Active Substance: PREGABALIN
     Indication: NEURALGIA
     Dosage: 100 MG, 3X/DAY
     Route: 048
  38. TRAZODONE HYDROCHLORIDE. [Concomitant]
     Active Substance: TRAZODONE HYDROCHLORIDE
     Indication: SLEEP DISORDER
     Dosage: 50 MG, 1X/DAY AT NIGHT
     Route: 048
     Dates: start: 2008
  39. MOTRIN [Concomitant]
     Active Substance: IBUPROFEN
     Indication: PAIN
     Dosage: 800 MG, AS NEEDED (EVERY SIX HOURS )
     Route: 048
  40. MEVACOR [Concomitant]
     Active Substance: LOVASTATIN
     Indication: BLOOD CHOLESTEROL INCREASED
     Dosage: 20 MG, 1X/DAY (NIGHTLY)
     Route: 048
  41. EFFEXOR XR [Concomitant]
     Active Substance: VENLAFAXINE HYDROCHLORIDE
     Dosage: UNK

REACTIONS (13)
  - Pruritus [Recovered/Resolved]
  - Drug effect incomplete [Unknown]
  - Nervousness [Recovered/Resolved]
  - Dysphonia [Recovered/Resolved]
  - Drug withdrawal syndrome [Recovered/Resolved]
  - Fatigue [Recovered/Resolved]
  - Tinnitus [Recovered/Resolved]
  - Headache [Recovered/Resolved]
  - Irritability [Recovered/Resolved]
  - Suicidal ideation [Recovered/Resolved]
  - Tremor [Recovered/Resolved]
  - Tearfulness [Recovered/Resolved]
  - Sleep disorder [Recovered/Resolved]

NARRATIVE: CASE EVENT DATE: 2014
